FAERS Safety Report 4989150-9 (Version None)
Quarter: 2006Q2

REPORT INFORMATION
  Report Type: 
  Country: None (occurrence: None)
  Receive Date: 20060425
  Receipt Date: 20060413
  Transmission Date: 20061013
  Serious: Yes (Other)
  Sender: FDA-Public Use
  Company Number: 2006050872

PATIENT
  Sex: Female
  Weight: 77.1115 kg

DRUGS (6)
  1. NEURONTIN [Suspect]
     Indication: NEUROPATHY
  2. LYRICA [Suspect]
     Indication: NEUROPATHY
     Dosage: 75 MG (75 MG, 1 IN 1 D)
     Dates: start: 20050101
  3. TOPAMAX [Suspect]
     Indication: MIGRAINE
  4. NADOLOL [Suspect]
     Indication: MIGRAINE
  5. EXTRA STRENGTH TYLENOL [Suspect]
     Indication: BACK PAIN
     Dosage: 500 MG
  6. ALEVE [Concomitant]

REACTIONS (6)
  - ALOPECIA [None]
  - AMNESIA [None]
  - DISTURBANCE IN ATTENTION [None]
  - DRUG EFFECT DECREASED [None]
  - RENAL NEOPLASM [None]
  - SOMNOLENCE [None]
